FAERS Safety Report 6892265-1 (Version None)
Quarter: 2010Q3

REPORT INFORMATION
  Report Type: 
  Country: None (occurrence: None)
  Receive Date: 20100731
  Receipt Date: 20080401
  Transmission Date: 20110219
  Serious: Yes (Other)
  Sender: FDA-Public Use
  Company Number: US-PFIZER INC-2008028792

PATIENT
  Sex: Male
  Weight: 69.09 kg

DRUGS (1)
  1. NEURONTIN [Suspect]
     Indication: NEURALGIA
     Dates: start: 20080117, end: 20080301

REACTIONS (1)
  - HYPERTENSION [None]
